FAERS Safety Report 4742347-5 (Version None)
Quarter: 2005Q3

REPORT INFORMATION
  Report Type: 
  Country: None (occurrence: None)
  Receive Date: 20050811
  Receipt Date: 20050411
  Transmission Date: 20060218
  Serious: No
  Sender: FDA-Public Use
  Company Number: US-GLAXOSMITHKLINE-A0553579A

PATIENT
  Age: 50 Year
  Sex: Male

DRUGS (7)
  1. PAXIL CR [Suspect]
     Indication: PANIC DISORDER
     Dosage: 20MG PER DAY
     Route: 048
     Dates: start: 19980101
  2. PAXIL [Suspect]
     Indication: PANIC DISORDER
     Route: 048
  3. KADIAN [Concomitant]
  4. MORPHINE SULFATE [Concomitant]
  5. CELEBREX [Concomitant]
  6. PREVACID [Concomitant]
  7. NEURONTIN [Concomitant]

REACTIONS (4)
  - HEADACHE [None]
  - HYPERHIDROSIS [None]
  - IRRITABILITY [None]
  - TREMOR [None]
